FAERS Safety Report 5128476-5 (Version None)
Quarter: 2006Q4

REPORT INFORMATION
  Report Type: 
  Country: None (occurrence: None)
  Receive Date: 20061011
  Receipt Date: 20060809
  Transmission Date: 20070319
  Serious: Yes (Other)
  Sender: FDA-Public Use
  Company Number: 2005125826

PATIENT
  Age: 46 Year
  Sex: Male

DRUGS (2)
  1. BEXTRA [Suspect]
     Indication: ARTHRITIS
     Dosage: 40 MG (20 MG, 2 IN 1 D)
     Dates: start: 20041011
  2. NEXIUM [Concomitant]

REACTIONS (7)
  - BENIGN NEOPLASM OF SKIN [None]
  - DERMATITIS PSORIASIFORM [None]
  - DRUG HYPERSENSITIVITY [None]
  - DYSURIA [None]
  - PITYRIASIS RUBRA PILARIS [None]
  - PULMONARY EMBOLISM [None]
  - STEVENS-JOHNSON SYNDROME [None]
